FAERS Safety Report 18142861 (Version 1)
Quarter: 2020Q3

REPORT INFORMATION
  Report Type: Spontaneous
  Country: CN (occurrence: CN)
  Receive Date: 20200813
  Receipt Date: 20200813
  Transmission Date: 20201103
  Serious: Yes (Other)
  Sender: FDA-Public Use
  Company Number: CN-BAXTER-2020BAX016261

PATIENT
  Age: 65 Year
  Sex: Male
  Weight: 55 kg

DRUGS (10)
  1. ENDOXAN [Suspect]
     Active Substance: CYCLOPHOSPHAMIDE
     Indication: B-CELL LYMPHOMA
     Dosage: CHOP REGIMEN, DAY 1
     Route: 041
     Dates: start: 20200626, end: 20200626
  2. VINDESINE SULFATE [Suspect]
     Active Substance: VINDESINE SULFATE
     Indication: B-CELL LYMPHOMA
     Dosage: CHOP REGIMEN, DAY 0
     Route: 041
     Dates: start: 20200625, end: 20200625
  3. TROPISETRON HYDROCHLORIDE [Suspect]
     Active Substance: TROPISETRON HYDROCHLORIDE
     Indication: VOMITING
     Route: 065
  4. ENDOXAN [Suspect]
     Active Substance: CYCLOPHOSPHAMIDE
     Dosage: CHOP REGIMEN, DAY 8
     Route: 041
     Dates: start: 20200703, end: 20200703
  5. DEXRAZOXANE. [Suspect]
     Active Substance: DEXRAZOXANE
     Indication: PROPHYLAXIS
     Route: 065
  6. REDUCED GLUTATHIONE SODIUM [Suspect]
     Active Substance: GLUTATHIONE
     Indication: PROPHYLAXIS
     Route: 065
  7. EPIRUBICIN HYDROCHLORIDE. [Suspect]
     Active Substance: EPIRUBICIN HYDROCHLORIDE
     Indication: B-CELL LYMPHOMA
     Dosage: CHOP REGIMEN, DAY 1?2
     Route: 041
     Dates: start: 20200626, end: 20200627
  8. PREDNISONE ACETATE [Suspect]
     Active Substance: PREDNISONE ACETATE
     Indication: B-CELL LYMPHOMA
     Dosage: DOSAGE FORM: TABLET, CHOP REGIMEN, DAY 1?5
     Route: 048
     Dates: start: 20200626, end: 20200630
  9. EPIRUBICIN HYDROCHLORIDE. [Suspect]
     Active Substance: EPIRUBICIN HYDROCHLORIDE
     Dosage: CHOP REGIMEN, DAY 3
     Route: 041
     Dates: start: 20200628, end: 20200628
  10. OMEPRAZOLE SODIUM [Suspect]
     Active Substance: OMEPRAZOLE SODIUM
     Indication: PROPHYLAXIS
     Route: 065

REACTIONS (2)
  - Myelosuppression [Unknown]
  - Plasma cell myeloma [Recovering/Resolving]

NARRATIVE: CASE EVENT DATE: 20200707
